FAERS Safety Report 18056591 (Version 2)
Quarter: 2020Q3

REPORT INFORMATION
  Report Type: Report from Study
  Country: US (occurrence: US)
  Receive Date: 20200722
  Receipt Date: 20200923
  Transmission Date: 20201103
  Serious: Yes (Other)
  Sender: FDA-Public Use
  Company Number: US-SA-2020SA189522

PATIENT

DRUGS (3)
  1. DELTASONE [Concomitant]
     Active Substance: PREDNISONE
     Dosage: UNK
  2. DUPILUMAB [Suspect]
     Active Substance: DUPILUMAB
     Indication: ECZEMA
     Dosage: 600 MG, 1X
     Route: 058
     Dates: start: 20200629, end: 20200629
  3. DUPILUMAB [Suspect]
     Active Substance: DUPILUMAB
     Indication: DERMATITIS ATOPIC
     Dosage: 300 MG, QOW
     Route: 058
     Dates: start: 2020

REACTIONS (5)
  - Eczema [Not Recovered/Not Resolved]
  - COVID-19 [Unknown]
  - SARS-CoV-2 test positive [Unknown]
  - Skin burning sensation [Not Recovered/Not Resolved]
  - Ageusia [Unknown]

NARRATIVE: CASE EVENT DATE: 20200701
